FAERS Safety Report 15318874 (Version 1)
Quarter: 2018Q3

REPORT INFORMATION
  Report Type: Spontaneous
  Country: US (occurrence: US)
  Receive Date: 20180820
  Receipt Date: 20180820
  Transmission Date: 20181010
  Serious: Yes (Other)
  Sender: FDA-Public Use
  Company Number: None

PATIENT
  Age: 65 Year
  Sex: Female
  Weight: 60.75 kg

DRUGS (1)
  1. REGADENOSON [Suspect]
     Active Substance: REGADENOSON

REACTIONS (11)
  - Nausea [None]
  - Dyspnoea [None]
  - Heart rate increased [None]
  - Feeling abnormal [None]
  - Movement disorder [None]
  - Anxiety [None]
  - Blood pressure decreased [None]
  - Headache [None]
  - Tremor [None]
  - Asthenia [None]
  - Insomnia [None]

NARRATIVE: CASE EVENT DATE: 20180816
